FAERS Safety Report 5926571-1 (Version None)
Quarter: 2008Q4

REPORT INFORMATION
  Report Type: 
  Country: None (occurrence: None)
  Receive Date: 20081022
  Receipt Date: 20081016
  Transmission Date: 20090506
  Serious: Yes (Other)
  Sender: FDA-Public Use
  Company Number: FR-ABBOTT-08P-056-0482138-00

PATIENT
  Sex: Female

DRUGS (4)
  1. HUMIRA [Suspect]
     Indication: PSORIATIC ARTHROPATHY
     Route: 058
     Dates: start: 20080101, end: 20080801
  2. HUMIRA [Suspect]
     Dates: start: 20080801
  3. KEBUZONE [Concomitant]
     Indication: PAIN
     Dates: start: 20080801
  4. MORPHINE SULFATE INJ [Concomitant]
     Indication: PAIN
     Dates: start: 20080801

REACTIONS (5)
  - CEREBRAL VENOUS THROMBOSIS [None]
  - DRUG INEFFECTIVE [None]
  - MALAISE [None]
  - PAIN [None]
  - SOMNOLENCE [None]
